FAERS Safety Report 7104220-7 (Version None)
Quarter: 2010Q4

REPORT INFORMATION
  Report Type: 
  Country: None (occurrence: None)
  Receive Date: 20101115
  Receipt Date: 20100609
  Transmission Date: 20110411
  Serious: No
  Sender: FDA-Public Use
  Company Number: US-ALLERGAN-1007571US

PATIENT
  Sex: Female

DRUGS (2)
  1. BOTOX COSMETIC [Suspect]
     Indication: SKIN WRINKLING
     Dosage: UNK
     Route: 030
     Dates: start: 20100524, end: 20100524
  2. TRIPLE NUMBING TOPICAL AGENT [Concomitant]
     Route: 061

REACTIONS (2)
  - INJECTION SITE RASH [None]
  - OROPHARYNGEAL PAIN [None]
